FAERS Safety Report 11648077 (Version 2)
Quarter: 2015Q4

REPORT INFORMATION
  Report Type: Report from Study
  Country: US (occurrence: US)
  Receive Date: 20151021
  Receipt Date: 20151118
  Transmission Date: 20160304
  Serious: Yes (Hospitalization)
  Sender: FDA-Public Use
  Company Number: US-BIOGENIDEC-2015BI140587

PATIENT
  Age: 56 Year
  Sex: Female

DRUGS (10)
  1. GLIPIZIDE. [Concomitant]
     Active Substance: GLIPIZIDE
  2. AVONEX [Suspect]
     Active Substance: INTERFERON BETA-1A
     Indication: MULTIPLE SCLEROSIS
     Route: 030
     Dates: start: 20110321
  3. CITALOPRAM HYDROBROMIDE. [Concomitant]
     Active Substance: CITALOPRAM HYDROBROMIDE
  4. COUMADIN [Concomitant]
     Active Substance: WARFARIN SODIUM
  5. OMEPRAZOLE. [Concomitant]
     Active Substance: OMEPRAZOLE
  6. METFORMIN HCL [Concomitant]
     Active Substance: METFORMIN HYDROCHLORIDE
  7. MORPHINE SULFATE. [Concomitant]
     Active Substance: MORPHINE SULFATE
  8. GLIMEPIRIDE. [Concomitant]
     Active Substance: GLIMEPIRIDE
  9. TOPAMAX [Concomitant]
     Active Substance: TOPIRAMATE
  10. AMITRIPTYLINE HCL [Concomitant]
     Active Substance: AMITRIPTYLINE

REACTIONS (2)
  - Asthenia [Unknown]
  - Intervertebral disc disorder [Unknown]
